FAERS Safety Report 13026219 (Version 6)
Quarter: 2017Q2

REPORT INFORMATION
  Report Type: Spontaneous
  Country: US (occurrence: US)
  Receive Date: 20161214
  Receipt Date: 20170612
  Transmission Date: 20170830
  Serious: Yes (Death, Congenital Anomaly, Other)
  Sender: FDA-Public Use
  Company Number: PHEH2016US032473

PATIENT
  Sex: Male

DRUGS (1)
  1. ZOFRAN ODT [Suspect]
     Active Substance: ONDANSETRON HYDROCHLORIDE
     Indication: FOETAL EXPOSURE DURING PREGNANCY
     Dosage: MOTHER DOSE: 04 MG, Q4H, 08 MG, Q8H
     Route: 064

REACTIONS (13)
  - Neonatal respiratory distress syndrome [Unknown]
  - Congenital anomaly [Unknown]
  - Sepsis neonatal [Unknown]
  - Hypoxia [Unknown]
  - Renal aplasia [Fatal]
  - Premature baby [Unknown]
  - Foetal exposure during pregnancy [Unknown]
  - Metabolic acidosis [Unknown]
  - Pulmonary hypoplasia [Unknown]
  - Patent ductus arteriosus [Unknown]
  - Pneumothorax [Unknown]
  - Left-to-right cardiac shunt [Unknown]
  - Agitation neonatal [Unknown]
